FAERS Safety Report 8361623-0 (Version None)
Quarter: 2012Q2

REPORT INFORMATION
  Report Type: 
  Country: None (occurrence: None)
  Receive Date: 20120515
  Receipt Date: 20120511
  Transmission Date: 20120825
  Serious: No
  Sender: FDA-Public Use
  Company Number: US-PFIZER INC-2012104093

PATIENT
  Age: 85 Year
  Sex: Female

DRUGS (4)
  1. ACCURETIC [Suspect]
     Dosage: UNK
  2. XALATAN [Suspect]
     Dosage: UNK
  3. ZOLOFT [Suspect]
     Dosage: UNK
  4. LIPITOR [Suspect]
     Dosage: UNK

REACTIONS (2)
  - MENTAL DISORDER [None]
  - HEARING IMPAIRED [None]
